FAERS Safety Report 5253024-9 (Version None)
Quarter: 2007Q1

REPORT INFORMATION
  Report Type: 
  Country: None (occurrence: None)
  Receive Date: 20070227
  Receipt Date: 20070212
  Transmission Date: 20070707
  Serious: Yes (Other)
  Sender: FDA-Public Use
  Company Number: GXKR2007GB01657

PATIENT
  Age: 40 Year
  Sex: Male

DRUGS (4)
  1. TRAMADOL HCL [Suspect]
     Indication: POSTOPERATIVE ANALGESIA
     Dosage: 50 MG, QID, ORAL
     Route: 048
     Dates: start: 20070117, end: 20070118
  2. LACTULOSE [Concomitant]
  3. ACETAMINOPHEN [Concomitant]
  4. RANITIDINE [Concomitant]

REACTIONS (1)
  - FACIAL PALSY [None]
